FAERS Safety Report 7801140-7 (Version None)
Quarter: 2011Q4

REPORT INFORMATION
  Report Type: 
  Country: None (occurrence: None)
  Receive Date: 20111007
  Receipt Date: 20110928
  Transmission Date: 20120403
  Serious: No
  Sender: FDA-Public Use
  Company Number: US-BIOGENIDEC-2011BI037514

PATIENT
  Age: 37 Year
  Sex: Female

DRUGS (1)
  1. TYSABRI [Suspect]
     Indication: MULTIPLE SCLEROSIS
     Route: 042
     Dates: start: 20100823

REACTIONS (10)
  - CONFUSIONAL STATE [None]
  - ANAEMIA [None]
  - COUGH [None]
  - HEADACHE [None]
  - MALAISE [None]
  - BRONCHITIS [None]
  - PAIN [None]
  - WHITE BLOOD CELL COUNT INCREASED [None]
  - OLIGOMENORRHOEA [None]
  - URINARY TRACT INFECTION [None]
